FAERS Safety Report 12758809 (Version 1)
Quarter: 2016Q3

REPORT INFORMATION
  Report Type: Spontaneous
  Country: HU (occurrence: HU)
  Receive Date: 20160919
  Receipt Date: 20160919
  Transmission Date: 20161109
  Serious: Yes (Death, Hospitalization, Other)
  Sender: FDA-Public Use
  Company Number: HU-PFIZER INC-2016431991

PATIENT
  Age: 70 Year
  Sex: Male

DRUGS (8)
  1. DIOVAN HCT [Concomitant]
     Active Substance: HYDROCHLOROTHIAZIDE\VALSARTAN
     Dosage: 80/12.5MG , DAILY
  2. CORDARONE [Suspect]
     Active Substance: AMIODARONE HYDROCHLORIDE
     Dosage: 200 MG, 2X/DAY
     Route: 048
     Dates: start: 20050307
  3. CORDARONE [Suspect]
     Active Substance: AMIODARONE HYDROCHLORIDE
     Dosage: 200 MG, DAILY
     Route: 048
     Dates: end: 20160425
  4. CORDARONE [Suspect]
     Active Substance: AMIODARONE HYDROCHLORIDE
     Indication: VENTRICULAR TACHYCARDIA
     Dosage: 200 MG, 3X/DAY
     Route: 048
     Dates: start: 200502
  5. BETALOC /00376902/ [Concomitant]
     Active Substance: METOPROLOL TARTRATE
     Dosage: 50 MG, 2X/DAY
  6. COLFARIT [Concomitant]
     Dosage: UNK
  7. FENOFIBRATE. [Concomitant]
     Active Substance: FENOFIBRATE
     Dosage: UNK
  8. FLUGALIN [Concomitant]

REACTIONS (9)
  - Electrocardiogram QT prolonged [Unknown]
  - Pulmonary fibrosis [Fatal]
  - Hypokalaemia [Fatal]
  - Pelvic venous thrombosis [Fatal]
  - Pneumonia [Fatal]
  - Respiratory failure [Fatal]
  - Pulmonary artery thrombosis [Fatal]
  - Bundle branch block left [Unknown]
  - Septic shock [Fatal]

NARRATIVE: CASE EVENT DATE: 200504
